FAERS Safety Report 11903600 (Version 2)
Quarter: 2016Q1

REPORT INFORMATION
  Report Type: Spontaneous
  Country: US (occurrence: US)
  Receive Date: 20160108
  Receipt Date: 20160218
  Transmission Date: 20160526
  Serious: Yes (Life-Threatening, Hospitalization, Other)
  Sender: FDA-Public Use
  Company Number: US-ACTAVIS-2015-28976

PATIENT
  Age: 69 Year
  Sex: Male

DRUGS (1)
  1. METFORMIN (UNKNOWN) [Suspect]
     Active Substance: METFORMIN HYDROCHLORIDE
     Dosage: UNK
     Route: 065

REACTIONS (2)
  - Distributive shock [Recovered/Resolved]
  - Lactic acidosis [Recovered/Resolved]
